FAERS Safety Report 9292872 (Version 1)
Quarter: 2013Q2

REPORT INFORMATION
  Report Type: Spontaneous
  Country: CN (occurrence: CN)
  Receive Date: 20130516
  Receipt Date: 20130516
  Transmission Date: 20140414
  Serious: Yes (Hospitalization)
  Sender: FDA-Public Use
  Company Number: CN-PFIZER INC-2013144320

PATIENT
  Age: 85 Year
  Sex: Female
  Weight: 42 kg

DRUGS (2)
  1. NORVASC [Suspect]
     Indication: HYPERTENSION
     Dosage: 5 MG, 1X/DAY
     Route: 048
     Dates: start: 20090210
  2. ASPIRIN ^BAYER^ [Concomitant]
     Dosage: UNK
     Route: 048

REACTIONS (4)
  - Lung infection [Recovering/Resolving]
  - Deep vein thrombosis [Recovering/Resolving]
  - Platelet count increased [Recovering/Resolving]
  - Drug ineffective [Recovering/Resolving]
